FAERS Safety Report 5175449-2 (Version None)
Quarter: 2006Q4

REPORT INFORMATION
  Report Type: 
  Country: None (occurrence: None)
  Receive Date: 20061215
  Receipt Date: 20060606
  Transmission Date: 20070319
  Serious: Yes (Hospitalization, Other)
  Sender: FDA-Public Use
  Company Number: US-AVENTIS-200615131US

PATIENT
  Age: 31 Year
  Sex: Male
  Weight: 104.6 kg

DRUGS (10)
  1. KETEK [Suspect]
     Indication: UPPER RESPIRATORY TRACT INFECTION
     Route: 048
     Dates: start: 20050928, end: 20051001
  2. KETEK [Suspect]
     Route: 048
     Dates: start: 20051007, end: 20051011
  3. KETEK [Suspect]
     Indication: SINUS DISORDER
     Route: 048
     Dates: start: 20050928, end: 20051001
  4. KETEK [Suspect]
     Route: 048
     Dates: start: 20051007, end: 20051011
  5. KETEK [Suspect]
     Indication: PHARYNGOLARYNGEAL PAIN
     Route: 048
     Dates: start: 20050928, end: 20051001
  6. KETEK [Suspect]
     Route: 048
     Dates: start: 20051007, end: 20051011
  7. ACETAMINOPHEN [Concomitant]
     Route: 048
  8. BROVEX [Concomitant]
     Indication: RHINITIS
     Dosage: DOSE: UNK
     Dates: start: 20050928, end: 20051001
  9. NASONEX [Concomitant]
     Indication: RHINITIS
     Dosage: DOSE: UNK
     Dates: start: 20051007, end: 20051001
  10. UNASYN ORAL                        /00903601/ [Concomitant]
     Indication: INFECTION
     Dosage: DOSE: UNK
     Route: 042
     Dates: start: 20051017, end: 20051018

REACTIONS (14)
  - BLOOD BILIRUBIN INCREASED [None]
  - CHILLS [None]
  - ENCEPHALOPATHY [None]
  - FATIGUE [None]
  - HEPATIC STEATOSIS [None]
  - HEPATITIS [None]
  - INTERNATIONAL NORMALISED RATIO INCREASED [None]
  - JAUNDICE [None]
  - PAIN [None]
  - PROTHROMBIN TIME PROLONGED [None]
  - PRURITUS [None]
  - PYREXIA [None]
  - RASH [None]
  - TRANSAMINASES INCREASED [None]
